FAERS Safety Report 7520937-4 (Version None)
Quarter: 2011Q2

REPORT INFORMATION
  Report Type: 
  Country: None (occurrence: None)
  Receive Date: 20110603
  Receipt Date: 20101130
  Transmission Date: 20111010
  Serious: Yes (Life-Threatening, Hospitalization)
  Sender: FDA-Public Use
  Company Number: FR-BAYER-201041971GPV

PATIENT
  Age: 31 Year
  Sex: Female
  Weight: 90 kg

DRUGS (3)
  1. MIRENA [Suspect]
     Indication: PRODUCT USED FOR UNKNOWN INDICATION
  2. MIRENA [Suspect]
     Indication: CONTRACEPTION
     Dosage: 20 ?G (DAILY DOSE), CONT, INTRA-UTERINE
     Route: 015
     Dates: start: 20080816
  3. ANTITHROMBOTIC AGENTS [Concomitant]

REACTIONS (6)
  - PREGNANCY WITH CONTRACEPTIVE DEVICE [None]
  - GESTATIONAL DIABETES [None]
  - MOTOR DYSFUNCTION [None]
  - INTERMITTENT CLAUDICATION [None]
  - DRUG EXPOSURE DURING PREGNANCY [None]
  - CEREBRAL VENOUS THROMBOSIS [None]
